FAERS Safety Report 25452734 (Version 1)
Quarter: 2025Q2

REPORT INFORMATION
  Report Type: Spontaneous
  Country: CN (occurrence: CN)
  Receive Date: 20250618
  Receipt Date: 20250618
  Transmission Date: 20250716
  Serious: Yes (Other)
  Sender: MYLAN
  Company Number: CN-MYLANLABS-2025M1050721

PATIENT
  Age: 82 Year
  Sex: Female

DRUGS (9)
  1. LYRICA [Suspect]
     Active Substance: PREGABALIN
     Indication: Oesophageal carcinoma
     Dosage: 75 MILLIGRAM, QD
     Dates: start: 20250521, end: 20250522
  2. OXYCODONE HYDROCHLORIDE [Suspect]
     Active Substance: OXYCODONE HYDROCHLORIDE
     Indication: Oesophageal carcinoma
     Dosage: 20 MILLIGRAM, BID
     Dates: start: 20250515, end: 20250522
  3. OXYCODONE HYDROCHLORIDE [Suspect]
     Active Substance: OXYCODONE HYDROCHLORIDE
     Indication: Coronary artery disease
  4. OXYCODONE HYDROCHLORIDE [Suspect]
     Active Substance: OXYCODONE HYDROCHLORIDE
     Indication: Stent placement
  5. OXYCODONE HYDROCHLORIDE [Suspect]
     Active Substance: OXYCODONE HYDROCHLORIDE
     Indication: Cancer pain
  6. FENTANYL [Suspect]
     Active Substance: FENTANYL
     Indication: Oesophageal carcinoma
     Dosage: 4.2 MILLIGRAM, QD
     Dates: start: 20250507, end: 20250522
  7. FENTANYL [Suspect]
     Active Substance: FENTANYL
     Indication: Coronary artery disease
  8. FENTANYL [Suspect]
     Active Substance: FENTANYL
     Indication: Stent placement
  9. MORPHINE [Suspect]
     Active Substance: MORPHINE
     Indication: Analgesic therapy

REACTIONS (2)
  - Hypoxia [Recovering/Resolving]
  - Off label use [Unknown]

NARRATIVE: CASE EVENT DATE: 20250521
